FAERS Safety Report 7084921-X (Version None)
Quarter: 2010Q4

REPORT INFORMATION
  Report Type: 
  Country: None (occurrence: None)
  Receive Date: 20101027
  Receipt Date: 20101019
  Transmission Date: 20110411
  Serious: Yes (Hospitalization)
  Sender: FDA-Public Use
  Company Number: WAES 0802DEU00002

PATIENT
  Age: 35 Year
  Sex: Male

DRUGS (3)
  1. CANCIDAS [Suspect]
     Indication: STEM CELL TRANSPLANT
     Dosage: 50 MG/QID, IV
     Route: 042
     Dates: start: 20071222, end: 20080104
  2. CYCLOSPORINE [Concomitant]
  3. PREDNISOLONE SODIUM SUCCINATE INJ [Concomitant]

REACTIONS (2)
  - ACUTE GRAFT VERSUS HOST DISEASE IN LIVER [None]
  - BLOOD BILIRUBIN INCREASED [None]
